FAERS Safety Report 11478748 (Version 1)
Quarter: 2015Q3

REPORT INFORMATION
  Report Type: Spontaneous
  Country: US (occurrence: US)
  Receive Date: 20150909
  Receipt Date: 20150909
  Transmission Date: 20151125
  Serious: No
  Sender: FDA-Public Use
  Company Number: US-TAKEDA-2015TUS011955

PATIENT
  Age: 20 Year
  Sex: Female

DRUGS (4)
  1. BRINTELLIX [Suspect]
     Active Substance: VORTIOXETINE HYDROBROMIDE
     Indication: MAJOR DEPRESSION
     Dosage: 5 MG, QD
     Route: 048
  2. TRILEPTAL [Concomitant]
     Active Substance: OXCARBAZEPINE
     Dosage: 300 MG, TID
  3. INVEGA [Concomitant]
     Active Substance: PALIPERIDONE
     Dosage: UNK, QD
  4. XANAX [Concomitant]
     Active Substance: ALPRAZOLAM
     Dosage: 1 MG, QD

REACTIONS (3)
  - Nausea [Recovered/Resolved]
  - Panic attack [Recovered/Resolved]
  - Vomiting [Recovered/Resolved]
